FAERS Safety Report 14829714 (Version 1)
Quarter: 2018Q2

REPORT INFORMATION
  Report Type: Spontaneous
  Country: US (occurrence: US)
  Receive Date: 20180430
  Receipt Date: 20180430
  Transmission Date: 20180711
  Serious: No
  Sender: FDA-Public Use
  Company Number: US-BAUSCH-BL-2017-030973

PATIENT
  Age: 73 Year
  Sex: Male
  Weight: 88.53 kg

DRUGS (2)
  1. LOTEMAX [Suspect]
     Active Substance: LOTEPREDNOL ETABONATE
     Indication: POSTOPERATIVE CARE
     Dosage: IN THE LEFT EYE
     Route: 047
     Dates: start: 20171005
  2. LOTEMAX [Suspect]
     Active Substance: LOTEPREDNOL ETABONATE
     Dosage: IN THE LEFT EYE, AS DIRECTED BY PHYSICIAN
     Route: 047
     Dates: start: 20171014, end: 20171101

REACTIONS (7)
  - Abnormal sensation in eye [Recovered/Resolved]
  - Eye discharge [Recovered/Resolved]
  - Ocular hyperaemia [Recovered/Resolved]
  - Ocular discomfort [Recovered/Resolved]
  - Eyelid disorder [Recovered/Resolved]
  - Eye swelling [Recovered/Resolved]
  - Eye pain [Recovered/Resolved]

NARRATIVE: CASE EVENT DATE: 2017
